FAERS Safety Report 6619427-2 (Version None)
Quarter: 2010Q1

REPORT INFORMATION
  Report Type: 
  Country: None (occurrence: None)
  Receive Date: 20100217
  Receipt Date: 20100201
  Transmission Date: 20100710
  Serious: Yes (Other)
  Sender: FDA-Public Use
  Company Number: 2010AL000695

PATIENT
  Age: 68 Year
  Sex: Male

DRUGS (3)
  1. MIRTAZAPINE [Suspect]
     Dosage: 30 MG, HS,
  2. FUROSEMIDE [Concomitant]
  3. ZOPICLONE [Concomitant]

REACTIONS (2)
  - RENAL IMPAIRMENT [None]
  - URINARY TRACT INFECTION [None]
